FAERS Safety Report 13079797 (Version 1)
Quarter: 2017Q1

REPORT INFORMATION
  Report Type: Report from Study
  Country: TH (occurrence: TH)
  Receive Date: 20170103
  Receipt Date: 20170103
  Transmission Date: 20170428
  Serious: Yes (Other)
  Sender: FDA-Public Use
  Company Number: TH-ROCHE-1873725

PATIENT

DRUGS (6)
  1. OFLOXACIN. [Concomitant]
     Active Substance: OFLOXACIN
     Route: 065
  2. GANCICLOVIR. [Suspect]
     Active Substance: GANCICLOVIR
     Indication: CYTOMEGALOVIRUS CHORIORETINITIS
     Route: 042
  3. POVIDONE-IODINE. [Concomitant]
     Active Substance: POVIDONE-IODINE
     Route: 065
  4. POVIDONE-IODINE. [Concomitant]
     Active Substance: POVIDONE-IODINE
     Route: 065
  5. GANCICLOVIR. [Suspect]
     Active Substance: GANCICLOVIR
     Dosage: 2 MG/0.04 ML
     Route: 050
  6. TETRACAINE. [Concomitant]
     Active Substance: TETRACAINE
     Route: 065

REACTIONS (7)
  - Blindness transient [Unknown]
  - Blindness [Unknown]
  - Retinal detachment [Unknown]
  - Conjunctival haemorrhage [Unknown]
  - Eye pain [Unknown]
  - Treatment failure [Unknown]
  - Vitreous haemorrhage [Unknown]
